FAERS Safety Report 8346174-1 (Version None)
Quarter: 2012Q2

REPORT INFORMATION
  Report Type: 
  Country: None (occurrence: None)
  Receive Date: 20120509
  Receipt Date: 20120129
  Transmission Date: 20120825
  Serious: Yes (Other)
  Sender: FDA-Public Use
  Company Number: GR-US-EMD SERONO, INC.-7109953

PATIENT
  Age: 32 Year
  Sex: Female

DRUGS (1)
  1. REBIF [Suspect]
     Indication: PRODUCT USED FOR UNKNOWN INDICATION
     Dates: start: 20100301, end: 20111010

REACTIONS (3)
  - MATERNAL EXPOSURE DURING PREGNANCY [None]
  - DEMYELINATION [None]
  - INCORRECT DOSE ADMINISTERED [None]
